FAERS Safety Report 5338923-1 (Version None)
Quarter: 2007Q2

REPORT INFORMATION
  Report Type: 
  Country: None (occurrence: None)
  Receive Date: 20070530
  Receipt Date: 20070525
  Transmission Date: 20071010
  Serious: Yes (Life-Threatening, Hospitalization)
  Sender: FDA-Public Use
  Company Number: US-ASTRAZENECA-2007UW12996

PATIENT
  Age: 43 Year
  Sex: Female

DRUGS (4)
  1. SEROQUEL [Suspect]
     Route: 048
  2. SEROQUEL [Suspect]
     Route: 048
     Dates: end: 20070101
  3. DEPAKOTE [Suspect]
     Dates: start: 20000101, end: 20070101
  4. HERBAL SUPPLEMENT [Concomitant]

REACTIONS (4)
  - BLOOD AMYLASE INCREASED [None]
  - HEPATIC FAILURE [None]
  - JAUNDICE [None]
  - WEIGHT INCREASED [None]
